FAERS Safety Report 11203905 (Version 1)
Quarter: 2015Q2

REPORT INFORMATION
  Report Type: Spontaneous
  Country: US (occurrence: US)
  Receive Date: 20150619
  Receipt Date: 20150619
  Transmission Date: 20150821
  Serious: No
  Sender: FDA-Public Use
  Company Number: US-GLAXOSMITHKLINE-US2015GSK086918

PATIENT
  Age: 32 Year
  Sex: Female

DRUGS (5)
  1. PENICILLIN V POTASSIUM. [Concomitant]
     Active Substance: PENICILLIN V POTASSIUM
  2. IMITREX [Concomitant]
     Active Substance: SUMATRIPTAN\SUMATRIPTAN SUCCINATE
  3. ALLEGRA [Concomitant]
     Active Substance: FEXOFENADINE HYDROCHLORIDE
  4. NICODERM CQ [Suspect]
     Active Substance: NICOTINE
     Route: 062
  5. VICODIN [Concomitant]
     Active Substance: ACETAMINOPHEN\HYDROCODONE BITARTRATE

REACTIONS (3)
  - Hypersensitivity [Unknown]
  - Heart rate increased [Unknown]
  - Pruritus [Unknown]

NARRATIVE: CASE EVENT DATE: 20060811
